FAERS Safety Report 4384637-4 (Version None)
Quarter: 2004Q2

REPORT INFORMATION
  Report Type: 
  Country: None (occurrence: None)
  Receive Date: 20040625
  Receipt Date: 20031118
  Transmission Date: 20050107
  Serious: No
  Sender: FDA-Public Use
  Company Number: US-BRISTOL-MYERS SQUIBB COMPANY-12438842

PATIENT
  Age: 52 Year
  Sex: Male
  Weight: 54 kg

DRUGS (5)
  1. SINEMET CR [Suspect]
     Indication: PARKINSON'S DISEASE
     Dosage: 1/2 PILL EVERY 2 HOURS
     Route: 048
  2. PRAVACHOL [Concomitant]
  3. AMANTADINE HCL [Concomitant]
  4. SINEMET [Concomitant]
  5. TASMAR [Concomitant]

REACTIONS (1)
  - DRUG INEFFECTIVE [None]
